FAERS Safety Report 13578856 (Version 1)
Quarter: 2017Q2

REPORT INFORMATION
  Report Type: Spontaneous
  Country: US (occurrence: US)
  Receive Date: 20170524
  Receipt Date: 20170524
  Transmission Date: 20170830
  Serious: No
  Sender: FDA-Public Use
  Company Number: US-JAZZ-2017-US-004848

PATIENT
  Sex: Female

DRUGS (31)
  1. XYREM [Suspect]
     Active Substance: SODIUM OXYBATE
     Dosage: DOSE ADJUSTMENT
     Route: 048
     Dates: start: 200411, end: 2005
  2. BENEFIBER                          /00677201/ [Concomitant]
     Active Substance: ICODEXTRIN
  3. MAGNESIUM OXIDE. [Concomitant]
     Active Substance: MAGNESIUM OXIDE
  4. NORCO [Concomitant]
     Active Substance: ACETAMINOPHEN\HYDROCODONE BITARTRATE
  5. XYREM [Suspect]
     Active Substance: SODIUM OXYBATE
     Indication: NARCOLEPSY
     Dosage: 2.25G, BID
     Route: 048
     Dates: start: 200410, end: 200411
  6. VITAMIN B2                         /00154901/ [Concomitant]
  7. PROCHLORPERAZINE. [Concomitant]
     Active Substance: PROCHLORPERAZINE
  8. LORATADINE. [Concomitant]
     Active Substance: LORATADINE
  9. SINGULAIR [Concomitant]
     Active Substance: MONTELUKAST SODIUM
  10. PERCOCET                           /00446701/ [Concomitant]
     Active Substance: ACETAMINOPHEN\OXYCODONE HYDROCHLORIDE\OXYCODONE TEREPHTHALATE
  11. MEDROL [Concomitant]
     Active Substance: METHYLPREDNISOLONE
  12. GABAPENTIN. [Concomitant]
     Active Substance: GABAPENTIN
  13. FLUTICASONE PROPIONATE. [Concomitant]
     Active Substance: FLUTICASONE PROPIONATE
  14. XYREM [Suspect]
     Active Substance: SODIUM OXYBATE
     Dosage: 4.5G, BID
     Route: 048
     Dates: start: 200509
  15. CELEBREX [Concomitant]
     Active Substance: CELECOXIB
  16. ALIGN [Concomitant]
     Active Substance: BIFIDOBACTERIUM LONGUM SUBSP. INFANTIS
  17. CALCIUM + VIT D [Concomitant]
     Active Substance: CALCIUM\VITAMIN D
  18. PROAIR HFA [Concomitant]
     Active Substance: ALBUTEROL SULFATE
  19. TOPAMAX [Concomitant]
     Active Substance: TOPIRAMATE
  20. ROBAXIN [Concomitant]
     Active Substance: METHOCARBAMOL
  21. XARELTO [Concomitant]
     Active Substance: RIVAROXABAN
  22. PREVACID [Concomitant]
     Active Substance: LANSOPRAZOLE
  23. FIORICET [Concomitant]
     Active Substance: ACETAMINOPHEN\BUTALBITAL\CAFFEINE
  24. FLOVENT HFA [Concomitant]
     Active Substance: FLUTICASONE PROPIONATE
  25. QVAR [Concomitant]
     Active Substance: BECLOMETHASONE DIPROPIONATE
  26. DOXYCYCLINE HYCLATE. [Concomitant]
     Active Substance: DOXYCYCLINE HYCLATE
  27. VITAMIN B12 [Concomitant]
     Active Substance: CYANOCOBALAMIN
  28. WARFARIN SODIUM. [Concomitant]
     Active Substance: WARFARIN SODIUM
  29. ASTEPRO [Concomitant]
     Active Substance: AZELASTINE HYDROCHLORIDE
  30. MIRALAX [Concomitant]
     Active Substance: POLYETHYLENE GLYCOL 3350
  31. VITAMIN D                          /00107901/ [Concomitant]
     Active Substance: ERGOCALCIFEROL

REACTIONS (1)
  - Fibromyalgia [Unknown]
